FAERS Safety Report 16328154 (Version 3)
Quarter: 2025Q4

REPORT INFORMATION
  Report Type: Spontaneous
  Country: EU (occurrence: EU)
  Receive Date: 20190518
  Receipt Date: 20251003
  Transmission Date: 20260117
  Serious: Yes (Other)
  Sender: AUROBINDO
  Company Number: EU-AUROBINDO-AUR-APL-2017-42540

PATIENT
  Age: 67 Year
  Sex: Male

DRUGS (7)
  1. LEVOFLOXACIN [Suspect]
     Active Substance: LEVOFLOXACIN
     Indication: Osteitis
     Dosage: 500 MG, BID
     Route: 042
  2. LEVOFLOXACIN [Suspect]
     Active Substance: LEVOFLOXACIN
     Dosage: 500 MG, BID
     Route: 048
  3. MEROPENEM [Suspect]
     Active Substance: MEROPENEM
     Indication: Osteitis
     Dosage: 1 G, FOUR TIMES/DAY
     Route: 042
  4. MEROPENEM [Suspect]
     Active Substance: MEROPENEM
     Dosage: 1 G, FOUR TIMES/DAY
     Route: 042
  5. AMIKACIN SULFATE [Suspect]
     Active Substance: AMIKACIN SULFATE
     Indication: Osteitis
     Dosage: 500 MG, TWO TIMES A DAY
     Route: 042
  6. AMIKACIN SULFATE [Suspect]
     Active Substance: AMIKACIN SULFATE
     Dosage: 500 MILLIGRAM, ONCE A DAY
     Route: 065
  7. RIFAMPIN [Suspect]
     Active Substance: RIFAMPIN
     Indication: Osteitis
     Dosage: UNK, TWO TIMES A DAY
     Route: 048

REACTIONS (5)
  - Skin hyperpigmentation [Recovered/Resolved with Sequelae]
  - Intentional product misuse [Unknown]
  - Product use in unapproved indication [Unknown]
  - Pigmentation disorder [Recovered/Resolved]
  - Skin discolouration [Recovered/Resolved]
